FAERS Safety Report 14665848 (Version 4)
Quarter: 2018Q2

REPORT INFORMATION
  Report Type: Spontaneous
  Country: PT (occurrence: PT)
  Receive Date: 20180321
  Receipt Date: 20180425
  Transmission Date: 20180711
  Serious: Yes (Other)
  Sender: FDA-Public Use
  Company Number: PHHY2018PT001199

PATIENT

DRUGS (3)
  1. CICLOSPORIN [Suspect]
     Active Substance: CYCLOSPORINE
     Indication: RENAL TRANSPLANT
     Route: 065
  2. CICLOSPORIN [Suspect]
     Active Substance: CYCLOSPORINE
     Indication: IMMUNOSUPPRESSANT DRUG THERAPY
  3. PARITAPREVIR [Concomitant]
     Active Substance: PARITAPREVIR
     Indication: HEPATITIS C
     Route: 065

REACTIONS (2)
  - Toxicity to various agents [Unknown]
  - Acute kidney injury [Unknown]
